FAERS Safety Report 9556328 (Version 1)
Quarter: 2013Q3

REPORT INFORMATION
  Report Type: Spontaneous
  Country: US (occurrence: None)
  Receive Date: 20130726
  Receipt Date: 20130726
  Transmission Date: 20140515
  Serious: Yes (Hospitalization)
  Sender: FDA-Public Use
  Company Number: UTC-032667

PATIENT
  Age: 59 Year
  Sex: Female

DRUGS (1)
  1. REMODULIN [Suspect]
     Indication: PULMONARY ARTERIAL HYPERTENSION
     Dosage: 49.608 UG/KG (0.03445 UG/KG, 1 IN 1 MIN)
     Route: 058

REACTIONS (1)
  - Infusion site irritation [None]
